FAERS Safety Report 23405336 (Version 2)
Quarter: 2024Q1

REPORT INFORMATION
  Report Type: Report from Study
  Country: CA (occurrence: CA)
  Receive Date: 20240116
  Receipt Date: 20240202
  Transmission Date: 20240410
  Serious: Yes (Death, Other)
  Sender: FDA-Public Use
  Company Number: CA-002147023-NVSC2022CA240778

PATIENT
  Sex: Female

DRUGS (2)
  1. PIRFENIDONE [Suspect]
     Active Substance: PIRFENIDONE
     Indication: Idiopathic pulmonary fibrosis
     Dosage: 801 MG/KG, TID
     Route: 048
     Dates: start: 20210831
  2. PIRFENIDONE [Suspect]
     Active Substance: PIRFENIDONE
     Indication: Pulmonary fibrosis
     Dosage: UNK
     Route: 048
     Dates: start: 20220718

REACTIONS (9)
  - Pulmonary fibrosis [Fatal]
  - Pneumonia aspiration [Fatal]
  - Interstitial lung disease [Fatal]
  - Arteriosclerosis coronary artery [Unknown]
  - Bronchiectasis [Unknown]
  - Pleural disorder [Unknown]
  - Lung opacity [Unknown]
  - Nausea [Recovering/Resolving]
  - Drug intolerance [Unknown]
